FAERS Safety Report 7690625-2 (Version None)
Quarter: 2011Q3

REPORT INFORMATION
  Report Type: 
  Country: None (occurrence: None)
  Receive Date: 20110818
  Receipt Date: 20110809
  Transmission Date: 20111222
  Serious: Yes (Hospitalization)
  Sender: FDA-Public Use
  Company Number: JP-SANOFI-AVENTIS-2011SA050351

PATIENT
  Age: 60 Year
  Sex: Female

DRUGS (5)
  1. CISPLATIN [Suspect]
     Route: 065
  2. DOCETAXEL [Suspect]
     Route: 065
  3. THERAPEUTIC RADIOPHARMACEUTICALS [Concomitant]
  4. CISPLATIN [Suspect]
     Route: 065
  5. DOCETAXEL [Suspect]
     Route: 065

REACTIONS (6)
  - PULMONARY AIR LEAKAGE [None]
  - PLEURAL EFFUSION [None]
  - EMPYEMA [None]
  - PNEUMOTHORAX [None]
  - LOWER RESPIRATORY TRACT INFECTION [None]
  - SUBCUTANEOUS EMPHYSEMA [None]
